FAERS Safety Report 17836868 (Version 1)
Quarter: 2020Q2

REPORT INFORMATION
  Report Type: Spontaneous
  Country: US (occurrence: US)
  Receive Date: 20200529
  Receipt Date: 20200529
  Transmission Date: 20200714
  Serious: Yes (Hospitalization, Other)
  Sender: FDA-Public Use
  Company Number: US-AUROBINDO-AUR-APL-2020-025793

PATIENT
  Age: 68 Year
  Sex: Male

DRUGS (1)
  1. VANCOMYCIN [Suspect]
     Active Substance: VANCOMYCIN
     Indication: CELLULITIS STAPHYLOCOCCAL
     Dosage: UNK
     Route: 065

REACTIONS (12)
  - Purpura [Unknown]
  - Abdominal pain [Unknown]
  - Haematuria [Unknown]
  - Proteinuria [Unknown]
  - Oliguria [Unknown]
  - Blood urea increased [Recovered/Resolved]
  - Haematochezia [Unknown]
  - Blood creatinine increased [Recovered/Resolved]
  - Nephritis [Unknown]
  - Renal impairment [Unknown]
  - Henoch-Schonlein purpura [Unknown]
  - Palpable purpura [Unknown]
